FAERS Safety Report 11831027 (Version 1)
Quarter: 2015Q4

REPORT INFORMATION
  Report Type: Spontaneous
  Country: US (occurrence: None)
  Receive Date: 20151211
  Receipt Date: 20151211
  Transmission Date: 20160305
  Serious: Yes (Hospitalization)
  Sender: FDA-Public Use
  Company Number: None

PATIENT
  Age: 82 Year
  Sex: Male
  Weight: 87.7 kg

DRUGS (2)
  1. DEXTROMETHORPHAN/GUAIFENESIN [Suspect]
     Active Substance: DEXTROMETHORPHAN\GUAIFENESIN
     Route: 048
     Dates: start: 20140708, end: 20151123
  2. TRAZODONE [Suspect]
     Active Substance: TRAZODONE HYDROCHLORIDE
     Route: 048
     Dates: start: 20151112, end: 20151119

REACTIONS (10)
  - Labile blood pressure [None]
  - Prostatitis [None]
  - Hyperhidrosis [None]
  - Tachycardia [None]
  - Mental status changes [None]
  - Urinary tract infection [None]
  - Feeling hot [None]
  - Serotonin syndrome [None]
  - Toxicity to various agents [None]
  - Muscle rigidity [None]

NARRATIVE: CASE EVENT DATE: 20151119
